FAERS Safety Report 8832618 (Version 1)
Quarter: 2012Q4

REPORT INFORMATION
  Report Type: Spontaneous
  Country: US (occurrence: None)
  Receive Date: 20121010
  Receipt Date: 20121010
  Transmission Date: 20130627
  Serious: Yes (Death, Life-Threatening, Hospitalization, Other)
  Sender: FDA-Public Use
  Company Number: None

PATIENT
  Age: 60 Year
  Sex: Female
  Weight: 122.47 kg

DRUGS (2)
  1. METHYLPREDNISOLONE NOS [Suspect]
     Indication: LOW BACK PAIN
     Dates: start: 20120701, end: 20120721
  2. METHYLPREDNISOLONE NOS [Suspect]
     Indication: NERVE COMPRESSION
     Dates: start: 20120701, end: 20120721

REACTIONS (2)
  - Fungal infection [None]
  - Gait disturbance [None]
